FAERS Safety Report 10145727 (Version 1)
Quarter: 2014Q2

REPORT INFORMATION
  Report Type: Spontaneous
  Country: US (occurrence: US)
  Receive Date: 20140501
  Receipt Date: 20140501
  Transmission Date: 20141212
  Serious: Yes (Other)
  Sender: FDA-Public Use
  Company Number: US-BRISTOL-MYERS SQUIBB COMPANY-20663175

PATIENT
  Age: 88 Year
  Sex: Female

DRUGS (4)
  1. COUMADIN [Suspect]
  2. XARELTO [Suspect]
     Indication: THROMBOSIS PROPHYLAXIS
     Dosage: FLIM COATED TABLET
     Route: 048
     Dates: start: 201401
  3. TERIPARATIDE [Concomitant]
     Indication: NEOPLASM MALIGNANT
  4. FISH OIL [Concomitant]
     Indication: NUTRITIONAL SUPPLEMENTATION

REACTIONS (4)
  - Pulmonary thrombosis [Unknown]
  - Haemarthrosis [Not Recovered/Not Resolved]
  - Fatigue [Recovered/Resolved]
  - Somnolence [Recovered/Resolved]
